FAERS Safety Report 6184207-1 (Version None)
Quarter: 2009Q2

REPORT INFORMATION
  Report Type: 
  Country: None (occurrence: None)
  Receive Date: 20090506
  Receipt Date: 20090430
  Transmission Date: 20091009
  Serious: Yes (Death)
  Sender: FDA-Public Use
  Company Number: SPV1-2009-00850

PATIENT
  Age: 7 Year
  Sex: Male
  Weight: 30.4 kg

DRUGS (4)
  1. VYVANSE [Suspect]
     Indication: ATTENTION DEFICIT/HYPERACTIVITY DISORDER
     Dosage: ORAL
     Route: 048
  2. SYMBYAX [Suspect]
     Indication: DRUG USE FOR UNKNOWN INDICATION
     Dates: start: 20090301
  3. ZYPREXA [Concomitant]
  4. LEXAPRO [Concomitant]

REACTIONS (1)
  - COMPLETED SUICIDE [None]
